FAERS Safety Report 10153466 (Version 2)
Quarter: 2014Q2

REPORT INFORMATION
  Report Type: Spontaneous
  Country: US (occurrence: US)
  Receive Date: 20140505
  Receipt Date: 20140505
  Transmission Date: 20141212
  Serious: No
  Sender: FDA-Public Use
  Company Number: US-ASTRAZENECA-2011SE19453

PATIENT
  Age: 60 Year
  Sex: Male

DRUGS (14)
  1. OMEPRAZOLE [Suspect]
     Indication: GASTROOESOPHAGEAL REFLUX DISEASE
     Route: 048
     Dates: start: 2009, end: 2009
  2. NEXIUM [Suspect]
     Indication: GASTROOESOPHAGEAL REFLUX DISEASE
     Route: 048
  3. LISINOPRIL [Suspect]
     Route: 048
  4. METFORMIN [Concomitant]
  5. VIAGRA [Concomitant]
  6. SIMVASTATIN [Concomitant]
  7. ANDROGEL [Concomitant]
  8. ALBUTEROL [Concomitant]
  9. AMOXICILLIN [Concomitant]
  10. CITALOPRAM [Concomitant]
  11. CYCLOBENZAPRINE [Concomitant]
  12. TRICOR [Concomitant]
  13. HYDROCODONE-ACETAMINOPHEN [Concomitant]
  14. KETOROLAC [Concomitant]

REACTIONS (6)
  - Diabetes mellitus [Unknown]
  - Hypertension [Unknown]
  - Blood cholesterol increased [Unknown]
  - Intervertebral disc degeneration [Unknown]
  - Gastrooesophageal reflux disease [Unknown]
  - Drug ineffective [Unknown]
